FAERS Safety Report 8489191-3 (Version None)
Quarter: 2012Q3

REPORT INFORMATION
  Report Type: 
  Country: None (occurrence: None)
  Receive Date: 20120705
  Receipt Date: 20120625
  Transmission Date: 20120928
  Serious: Yes (Other)
  Sender: FDA-Public Use
  Company Number: AU-ASTRAZENECA-2011SE46569

PATIENT
  Age: 44 Year
  Sex: Male
  Weight: 44.5 kg

DRUGS (1)
  1. NEXIUM [Suspect]
     Route: 048

REACTIONS (12)
  - INSOMNIA [None]
  - VOMITING [None]
  - MALAISE [None]
  - TRANSIENT ISCHAEMIC ATTACK [None]
  - ULCER [None]
  - WEIGHT DECREASED [None]
  - INTENTIONAL DRUG MISUSE [None]
  - CONVULSION [None]
  - EMPHYSEMA [None]
  - FALL [None]
  - IMPAIRED WORK ABILITY [None]
  - DRUG DOSE OMISSION [None]
